FAERS Safety Report 6240950-7 (Version None)
Quarter: 2009Q2

REPORT INFORMATION
  Report Type: 
  Country: None (occurrence: None)
  Receive Date: 20090623
  Receipt Date: 20090617
  Transmission Date: 20091009
  Serious: Yes (Other)
  Sender: FDA-Public Use
  Company Number: FR-ASTRAZENECA-2009CG01046

PATIENT
  Age: 613 Month
  Sex: Male
  Weight: 96.5 kg

DRUGS (7)
  1. CRESTOR [Suspect]
     Indication: PROPHYLAXIS
     Route: 048
     Dates: start: 20090101, end: 20090418
  2. BISOPROLOL [Concomitant]
     Indication: CARDIAC FAILURE
     Dates: start: 20080101
  3. KARDEGIC [Concomitant]
     Indication: CORONARY ARTERY DISEASE
     Dates: start: 20080101
  4. NICORANDIL [Concomitant]
     Indication: CARDIAC FAILURE
     Dates: start: 20080101
  5. PLAVIX [Concomitant]
     Dates: start: 20080101
  6. RAMIPRIL [Concomitant]
     Dates: start: 20080101
  7. FUROSEMIDE [Concomitant]
     Dates: start: 20080101

REACTIONS (6)
  - ARTHRALGIA [None]
  - ASTHENIA [None]
  - BLOOD CREATINE PHOSPHOKINASE INCREASED [None]
  - DYSPNOEA EXERTIONAL [None]
  - EYELID DISORDER [None]
  - MYALGIA [None]
